FAERS Safety Report 6027883-6 (Version None)
Quarter: 2009Q1

REPORT INFORMATION
  Report Type: 
  Country: None (occurrence: None)
  Receive Date: 20090105
  Receipt Date: 20090105
  Transmission Date: 20090719
  Serious: Yes (Hospitalization, Other)
  Sender: FDA-Public Use
  Company Number: US-PFIZER INC-2008083127

PATIENT
  Sex: Female
  Weight: 56.7 kg

DRUGS (8)
  1. XALATAN [Suspect]
     Indication: GLAUCOMA
  2. ARICEPT [Suspect]
     Indication: DEMENTIA
     Dates: start: 20080801
  3. DILANTIN [Suspect]
     Indication: CONVULSION
     Dates: start: 20080801
  4. LIPITOR [Concomitant]
  5. AGGRENOX [Concomitant]
  6. VALSARTAN [Concomitant]
  7. BISOPROLOL FUMARATE [Concomitant]
  8. FEXOFENADINE [Concomitant]

REACTIONS (4)
  - ANTICONVULSANT DRUG LEVEL INCREASED [None]
  - CEREBROVASCULAR ACCIDENT [None]
  - CONVULSION [None]
  - DEMENTIA [None]
